FAERS Safety Report 8769786 (Version 5)
Quarter: 2013Q4

REPORT INFORMATION
  Report Type: Report from Study
  Country: ES (occurrence: ES)
  Receive Date: 20120905
  Receipt Date: 20131205
  Transmission Date: 20140711
  Serious: Yes (Hospitalization)
  Sender: FDA-Public Use
  Company Number: ES-BRISTOL-MYERS SQUIBB COMPANY-16909335

PATIENT
  Age: 78 Year
  Sex: Female
  Weight: 80 kg

DRUGS (8)
  1. CARBOPLATIN [Suspect]
     Indication: OVARIAN EPITHELIAL CANCER
     Dosage: 17JAN12-21MAR12,?21MAR12-ONG-491 MG-EVERY 21D?623.23 MG
     Route: 042
     Dates: start: 20120117
  2. PACLITAXEL [Suspect]
     Indication: OVARIAN EPITHELIAL CANCER
     Dosage: 17JAN12-21MAR12,?21MAR12-ONG-251MG-EVERY 21D?325.5MG
     Route: 042
     Dates: start: 20120117
  3. BEVACIZUMAB [Suspect]
     Indication: FALLOPIAN TUBE CANCER
     Dosage: 17JAN12-07FEB12,?21MAR12-ONG-600MG-EVERY-21D
     Route: 042
     Dates: start: 20120117
  4. BEVACIZUMAB [Suspect]
     Indication: MALIGNANT PERITONEAL NEOPLASM
     Dosage: 17JAN12-07FEB12,?21MAR12-ONG-600MG-EVERY-21D
     Route: 042
     Dates: start: 20120117
  5. BEVACIZUMAB [Suspect]
     Indication: OVARIAN EPITHELIAL CANCER
     Dosage: 17JAN12-07FEB12,?21MAR12-ONG-600MG-EVERY-21D
     Route: 042
     Dates: start: 20120117
  6. COROPRES [Concomitant]
     Dates: start: 20111129
  7. AMLODIPINE [Concomitant]
     Dates: start: 20111129
  8. ATORVASTATIN [Concomitant]
     Dates: start: 20111129

REACTIONS (3)
  - Asthenia [Recovered/Resolved]
  - Mucosal inflammation [Recovered/Resolved]
  - Oesophagitis [Recovered/Resolved]
